FAERS Safety Report 4575800-8 (Version None)
Quarter: 2005Q1

REPORT INFORMATION
  Report Type: 
  Country: None (occurrence: None)
  Receive Date: 20050209
  Receipt Date: 20050208
  Transmission Date: 20050727
  Serious: Yes (Other)
  Sender: FDA-Public Use
  Company Number: US-GLAXOSMITHKLINE-A0544525A

PATIENT
  Sex: Female

DRUGS (3)
  1. FLONASE [Suspect]
     Indication: DRUG USE FOR UNKNOWN INDICATION
     Dosage: 1SPR PER DAY
     Route: 045
     Dates: start: 20010101
  2. CARDIZEM CD [Concomitant]
  3. SYNTHROID [Concomitant]

REACTIONS (5)
  - BLINDNESS [None]
  - CATARACT [None]
  - COUGH [None]
  - EYE PAIN [None]
  - VISION BLURRED [None]
